FAERS Safety Report 18657915 (Version 10)
Quarter: 2022Q3

REPORT INFORMATION
  Report Type: Spontaneous
  Country: DE (occurrence: DE)
  Receive Date: 20201223
  Receipt Date: 20220801
  Transmission Date: 20221026
  Serious: Yes (Hospitalization, Other)
  Sender: FDA-Public Use
  Company Number: BRAINTREE LABORATORIES 180579-6

PATIENT
  Age: 23 Year
  Sex: Female

DRUGS (8)
  1. MAGNESIUM SULFATE\POTASSIUM SULFATE\SODIUM SULFATE [Suspect]
     Active Substance: MAGNESIUM SULFATE\POTASSIUM SULFATE\SODIUM SULFATE
     Indication: Gastrointestinal examination
     Dosage: UNK
     Route: 065
     Dates: start: 20180927
  2. OCREVUS [Suspect]
     Active Substance: OCRELIZUMAB
     Indication: Relapsing-remitting multiple sclerosis
     Dosage: 300 MG, 2X/YEAR
     Route: 042
     Dates: start: 20180703
  3. OCREVUS [Suspect]
     Active Substance: OCRELIZUMAB
     Dosage: 600 MG, 2X/YEAR
     Route: 042
     Dates: start: 20190124
  4. OCREVUS [Suspect]
     Active Substance: OCRELIZUMAB
     Dosage: 600 MG, 2X/YEAR
     Route: 042
     Dates: start: 20200121, end: 2020
  5. OCREVUS [Suspect]
     Active Substance: OCRELIZUMAB
     Dosage: 600 MG, 2X/YEAR
     Route: 042
     Dates: start: 20200723
  6. CHOLECALCIFEROL [Concomitant]
     Active Substance: CHOLECALCIFEROL
     Dosage: 20000 IU, 1X/WEEK
  7. BACLOFEN [Concomitant]
     Active Substance: BACLOFEN
     Dosage: 10 MG, IN THE EVENING
  8. FEXOFENADINE [Concomitant]
     Active Substance: FEXOFENADINE HYDROCHLORIDE
     Dosage: 180 MG

REACTIONS (45)
  - Multiple sclerosis relapse [Recovering/Resolving]
  - Arrhythmia [Recovering/Resolving]
  - Circulatory collapse [Recovered/Resolved]
  - Multiple sclerosis relapse [Recovered/Resolved]
  - Respiratory distress [Recovered/Resolved]
  - Anaphylactoid reaction [Not Recovered/Not Resolved]
  - Long QT syndrome [Recovered/Resolved]
  - Multiple sclerosis [Recovered/Resolved]
  - COVID-19 [Recovered/Resolved]
  - Joint hyperextension [Not Recovered/Not Resolved]
  - Muscular weakness [Recovering/Resolving]
  - Fatigue [Not Recovered/Not Resolved]
  - Thyroid mass [Not Recovered/Not Resolved]
  - Nightmare [Not Recovered/Not Resolved]
  - Abnormal dreams [Not Recovered/Not Resolved]
  - Limb discomfort [Not Recovered/Not Resolved]
  - Hypoaesthesia [Not Recovered/Not Resolved]
  - Migraine [Not Recovered/Not Resolved]
  - Histamine intolerance [Recovering/Resolving]
  - Impaired healing [Unknown]
  - Blood potassium abnormal [Recovering/Resolving]
  - Nasopharyngitis [Recovering/Resolving]
  - Headache [Recovering/Resolving]
  - Blood electrolytes abnormal [Recovering/Resolving]
  - Flatulence [Recovering/Resolving]
  - Sneezing [Recovering/Resolving]
  - Abdominal pain upper [Recovering/Resolving]
  - Blood glucose decreased [Recovered/Resolved]
  - Hypotension [Recovered/Resolved]
  - Oropharyngeal pain [Recovered/Resolved]
  - Pharyngeal swelling [Recovered/Resolved]
  - Peroneal nerve palsy [Recovered/Resolved]
  - Fatigue [Recovered/Resolved]
  - Asthenia [Recovered/Resolved]
  - Influenza [Recovered/Resolved]
  - Suffocation feeling [Unknown]
  - Lymphoedema [Unknown]
  - Bronchitis [Recovered/Resolved]
  - Fatigue [Recovering/Resolving]
  - Muscle spasticity [Unknown]
  - Nasal oedema [Recovered/Resolved]
  - Epstein-Barr virus infection [Recovered/Resolved]
  - Asthenia [Not Recovered/Not Resolved]
  - Drug intolerance [Unknown]
  - Therapeutic product effect decreased [Unknown]

NARRATIVE: CASE EVENT DATE: 20180101
